FAERS Safety Report 7291658-0 (Version None)
Quarter: 2011Q1

REPORT INFORMATION
  Report Type: 
  Country: None (occurrence: None)
  Receive Date: 20110214
  Receipt Date: 20110209
  Transmission Date: 20110831
  Serious: Yes (Other)
  Sender: FDA-Public Use
  Company Number: US-PFIZER INC-2011029519

PATIENT
  Sex: Female
  Weight: 49.433 kg

DRUGS (1)
  1. LYRICA [Suspect]
     Indication: HERPES ZOSTER
     Dosage: 75 MG, 2X/DAY
     Route: 048
     Dates: start: 20110101

REACTIONS (4)
  - VISUAL IMPAIRMENT [None]
  - EYE DISORDER [None]
  - DRUG INEFFECTIVE [None]
  - METAMORPHOPSIA [None]
